FAERS Safety Report 9960340 (Version 1)
Quarter: 2014Q1

REPORT INFORMATION
  Report Type: Report from Study
  Country: US (occurrence: US)
  Receive Date: 20140305
  Receipt Date: 20140305
  Transmission Date: 20141002
  Serious: No
  Sender: FDA-Public Use
  Company Number: US-ABBVIE-13P-163-1101471-00

PATIENT
  Sex: Female

DRUGS (7)
  1. HUMIRA [Suspect]
     Indication: PSORIASIS
  2. HUMIRA [Suspect]
  3. HUMIRA [Suspect]
  4. PROTONIX [Concomitant]
     Indication: GASTROOESOPHAGEAL REFLUX DISEASE
  5. CLOBETASOL [Concomitant]
     Indication: PSORIASIS
  6. VOLTAREN [Concomitant]
     Indication: ARTHRALGIA
  7. VITAMIN D [Concomitant]
     Indication: PRODUCT USED FOR UNKNOWN INDICATION

REACTIONS (11)
  - Device malfunction [Unknown]
  - Incorrect dose administered [Unknown]
  - Bacterial infection [Recovering/Resolving]
  - Pathogen resistance [Recovering/Resolving]
  - Gastrointestinal infection [Recovering/Resolving]
  - Device malfunction [Unknown]
  - Injection site pain [Unknown]
  - Psoriasis [Recovering/Resolving]
  - Arthralgia [Unknown]
  - Depression [Unknown]
  - Mental impairment [Unknown]
